FAERS Safety Report 5635285-7 (Version None)
Quarter: 2008Q1

REPORT INFORMATION
  Report Type: 
  Country: None (occurrence: None)
  Receive Date: 20080222
  Receipt Date: 20080124
  Transmission Date: 20080703
  Serious: Yes (Other)
  Sender: FDA-Public Use
  Company Number: US-PFIZER INC-2007104130

PATIENT
  Sex: Male
  Weight: 59.9 kg

DRUGS (7)
  1. CHANTIX [Suspect]
     Indication: SMOKING CESSATION THERAPY
     Route: 048
  2. ATRIPLA [Interacting]
     Indication: HIV TEST POSITIVE
  3. REYATAZ [Interacting]
     Indication: HIV TEST POSITIVE
  4. DILANTIN [Concomitant]
  5. PHENOBARBITAL TAB [Concomitant]
  6. PRAVASTATIN [Concomitant]
  7. ACYCLOVIR [Concomitant]

REACTIONS (5)
  - ABNORMAL DREAMS [None]
  - BLOOD HIV RNA INCREASED [None]
  - DRUG INTERACTION [None]
  - T-LYMPHOCYTE COUNT DECREASED [None]
  - THINKING ABNORMAL [None]
